FAERS Safety Report 12618411 (Version 1)
Quarter: 2016Q3

REPORT INFORMATION
  Report Type: Spontaneous
  Country: US (occurrence: None)
  Receive Date: 20160802
  Receipt Date: 20160802
  Transmission Date: 20161109
  Serious: Yes (Hospitalization)
  Sender: FDA-Public Use
  Company Number: None

PATIENT
  Age: 17 Year
  Sex: Female
  Weight: 52.1 kg

DRUGS (4)
  1. MERCAPTOPURINE. [Suspect]
     Active Substance: MERCAPTOPURINE
     Dosage: MERCAPTOPURINE 1200 MG WAS TOTAL DOSE ADMINISTERED?LAST DOSE DUE ON 07/28/16
     Dates: end: 20160723
  2. CYTARABINE. [Suspect]
     Active Substance: CYTARABINE
     Dosage: CYTARABINE 920 MG ADMINISTERED ?4 DAYS GIVEN FROM 07/15/16-07/18/16, AND 4 AND ANOTHER 4 DAYS FROM 07/22/16-07/25/2016
     Dates: end: 20160723
  3. METHOTREXATE. [Suspect]
     Active Substance: METHOTREXATE
     Dosage: METHOTREXATE 30 MG TOTAL DOSE ADMINISTERED?INTRATHECAL ONLY DURING THIS COURSE
     Route: 037
     Dates: end: 20160722
  4. CYCLOPHOSPHAMIDE. [Suspect]
     Active Substance: CYCLOPHOSPHAMIDE
     Dates: end: 20160715

REACTIONS (12)
  - Vulval disorder [None]
  - Ulcer [None]
  - Rectal fissure [None]
  - Anal abscess [None]
  - Klebsiella test positive [None]
  - Simplex virus test positive [None]
  - Neutropenia [None]
  - Pseudomonas test positive [None]
  - Blood creatinine increased [None]
  - Haemorrhoids [None]
  - Impaired healing [None]
  - Rash pustular [None]

NARRATIVE: CASE EVENT DATE: 20160722
